FAERS Safety Report 24093868 (Version 1)
Quarter: 2024Q3

REPORT INFORMATION
  Report Type: Spontaneous
  Country: FR (occurrence: FR)
  Receive Date: 20240716
  Receipt Date: 20240716
  Transmission Date: 20241017
  Serious: Yes (Hospitalization)
  Sender: ELI LILLY AND CO
  Company Number: FR-ELI_LILLY_AND_COMPANY-FR202407003770

PATIENT
  Age: 30 Year
  Sex: Female
  Weight: 50 kg

DRUGS (9)
  1. TALTZ [Suspect]
     Active Substance: IXEKIZUMAB
     Indication: Psoriasis
     Dosage: UNK UNK, UNKNOWN
     Route: 058
     Dates: start: 202109, end: 20220818
  2. TALTZ [Suspect]
     Active Substance: IXEKIZUMAB
     Dosage: 80 MG, MONTHLY (1/M)
     Route: 058
  3. HYRIMOZ [Suspect]
     Active Substance: ADALIMUMAB-ADAZ
     Indication: Psoriasis
     Dosage: 40 MG, 2/W
     Route: 058
     Dates: start: 20210808, end: 202109
  4. METHOTREXATE SODIUM [Suspect]
     Active Substance: METHOTREXATE SODIUM
     Indication: Psoriasis
     Dosage: 15 MG, WEEKLY (1/W)
     Route: 065
     Dates: start: 201808, end: 20190808
  5. METHOTREXATE SODIUM [Suspect]
     Active Substance: METHOTREXATE SODIUM
     Dosage: 17.5 MG, WEEKLY (1/W)
     Route: 065
     Dates: start: 20190124, end: 20190808
  6. SKYRIZI [Suspect]
     Active Substance: RISANKIZUMAB-RZAA
     Indication: Psoriasis
     Dosage: 150 MG, OTHER
     Route: 058
     Dates: start: 20220818, end: 20230821
  7. BRODALUMAB [Suspect]
     Active Substance: BRODALUMAB
     Indication: Psoriasis
     Dosage: 210 MG, 2/W
     Route: 058
     Dates: start: 20230821, end: 20231227
  8. DESOGESTREL [Concomitant]
     Active Substance: DESOGESTREL
     Indication: Hormonal contraception
     Dosage: 1 DOSAGE FORM, DAILY
     Route: 048
  9. ASCORBIC ACID\FERROUS SULFATE [Concomitant]
     Active Substance: ASCORBIC ACID\FERROUS SULFATE
     Indication: Mineral supplementation
     Dosage: 50 MG, UNKNOWN
     Route: 048

REACTIONS (1)
  - B-cell type acute leukaemia [Not Recovered/Not Resolved]

NARRATIVE: CASE EVENT DATE: 20231223
